FAERS Safety Report 4885354-4 (Version None)
Quarter: 2005Q4

REPORT INFORMATION
  Report Type: 
  Country: None (occurrence: None)
  Receive Date: 20051228
  Receipt Date: 20050721
  Transmission Date: 20060501
  Serious: Yes (Hospitalization, Disabling)
  Sender: FDA-Public Use
  Company Number: US94041780A

PATIENT
  Age: 61 Year
  Sex: Female

DRUGS (9)
  1. ILETIN-PORT LENTE INSULIN (INSULIN, ANIMAL) [Suspect]
     Indication: DIABETES MELLITUS
  2. HUMULIN U [Suspect]
     Indication: DIABETES MELLITUS
     Dosage: 10 U/ 1 DAY
  3. HUMULIN R [Suspect]
     Indication: DIABETES MELLITUS
     Dosage: 15 U/ 1 DAY
  4. INSULIN [Suspect]
     Indication: DIABETES MELLITUS
  5. INSULIN-PORK PROTAMINE ZINC INSULIN (INSULIN, ANIMA [Suspect]
     Indication: DIABETES MELLITUS
  6. REGULAR PURIFIED PORK INSULIN [Suspect]
     Indication: DIABETES MELLITUS
  7. HUMULIN-HUMAN INSULIN (RDNA) (HU [Suspect]
     Indication: DIABETES MELLITUS
  8. BENADRYL [Concomitant]
  9. LANTUS [Concomitant]

REACTIONS (8)
  - ACCIDENT [None]
  - BLOOD GLUCOSE DECREASED [None]
  - BLOOD GLUCOSE INCREASED [None]
  - DIABETES MELLITUS INADEQUATE CONTROL [None]
  - DRUG HYPERSENSITIVITY [None]
  - PROLONGED LABOUR [None]
  - SPINAL FRACTURE [None]
  - SWELLING FACE [None]
